FAERS Safety Report 15964002 (Version 1)
Quarter: 2019Q1

REPORT INFORMATION
  Report Type: Spontaneous
  Country: DE (occurrence: DE)
  Receive Date: 20190214
  Receipt Date: 20190214
  Transmission Date: 20190417
  Serious: Yes (Death)
  Sender: FDA-Public Use
  Company Number: DE-ARRAY-2019-05088

PATIENT

DRUGS (4)
  1. VALSARTAN. [Concomitant]
     Active Substance: VALSARTAN
     Indication: HYPERTENSION
  2. MEKTOVI [Suspect]
     Active Substance: BINIMETINIB
     Indication: MALIGNANT MELANOMA
     Dosage: 45 MG, QD
     Dates: start: 20181010, end: 20190128
  3. BRAFTOVI [Suspect]
     Active Substance: ENCORAFENIB
     Indication: MALIGNANT MELANOMA
     Dosage: 450 MG, QD
     Dates: start: 20181010, end: 20190128
  4. MEKTOVI [Suspect]
     Active Substance: BINIMETINIB
     Dosage: 30 MG, QD

REACTIONS (2)
  - Cerebellar haemorrhage [Fatal]
  - Brain stem haemorrhage [Fatal]

NARRATIVE: CASE EVENT DATE: 20190128
